FAERS Safety Report 8109274-7 (Version None)
Quarter: 2012Q1

REPORT INFORMATION
  Report Type: 
  Country: None (occurrence: None)
  Receive Date: 20120202
  Receipt Date: 20120105
  Transmission Date: 20120608
  Serious: No
  Sender: FDA-Public Use
  Company Number: US-AMGEN-USASP2012000759

PATIENT
  Sex: Female

DRUGS (2)
  1. ENBREL [Suspect]
     Indication: RHEUMATOID ARTHRITIS
     Dosage: UNK
     Dates: start: 20091113
  2. INSULIN [Concomitant]
     Dosage: UNK

REACTIONS (4)
  - INJECTION SITE HAEMATOMA [None]
  - ERYTHEMA [None]
  - RASH [None]
  - DRY SKIN [None]
